FAERS Safety Report 5383642-9 (Version None)
Quarter: 2007Q3

REPORT INFORMATION
  Report Type: 
  Country: None (occurrence: None)
  Receive Date: 20070706
  Receipt Date: 20070628
  Transmission Date: 20080115
  Serious: Yes (Other)
  Sender: FDA-Public Use
  Company Number: 2007SP008205

PATIENT
  Age: 52 Year
  Sex: Female

DRUGS (3)
  1. INTEGRILIN [Suspect]
     Indication: DRUG USE FOR UNKNOWN INDICATION
     Dosage: UNK; UNK
  2. LOVENOX [Suspect]
     Indication: DRUG USE FOR UNKNOWN INDICATION
     Dosage: UNK
  3. HEPARIN [Concomitant]

REACTIONS (2)
  - PROCEDURAL COMPLICATION [None]
  - THROMBOSIS [None]
